FAERS Safety Report 10246113 (Version 1)
Quarter: 2014Q2

REPORT INFORMATION
  Report Type: Spontaneous
  Country: US (occurrence: US)
  Receive Date: 20140619
  Receipt Date: 20140619
  Transmission Date: 20141212
  Serious: Yes (Hospitalization, Other)
  Sender: FDA-Public Use
  Company Number: US-JNJFOC-20140603315

PATIENT
  Sex: Female
  Weight: 79.83 kg

DRUGS (8)
  1. REMICADE [Suspect]
     Indication: ANKYLOSING SPONDYLITIS
     Route: 042
     Dates: start: 201106, end: 201111
  2. OXYGEN [Concomitant]
     Indication: CARDIAC FAILURE CONGESTIVE
     Route: 045
  3. LASIX [Concomitant]
     Indication: CARDIAC FAILURE CONGESTIVE
     Route: 048
     Dates: start: 2006
  4. POTASSIUM CHLORIDE [Concomitant]
     Indication: MINERAL SUPPLEMENTATION
     Dosage: 20-40 MEQ
     Route: 048
     Dates: start: 2006
  5. WARFARIN SODIUM [Concomitant]
     Indication: CARDIAC VALVE DISEASE
     Route: 048
     Dates: start: 2006
  6. ASPIRIN [Concomitant]
     Route: 048
  7. ADVAIR [Concomitant]
     Route: 048
  8. GABAPENTIN [Concomitant]
     Indication: TRIGEMINAL NEURALGIA
     Route: 048

REACTIONS (7)
  - Bronchitis [Unknown]
  - Vascular calcification [Not Recovered/Not Resolved]
  - Nephropathy [Not Recovered/Not Resolved]
  - Epiphysitis [Not Recovered/Not Resolved]
  - Lymphoedema [Recovered/Resolved]
  - Cardiac failure congestive [Recovered/Resolved]
  - Drug ineffective [Unknown]
